FAERS Safety Report 9837819 (Version 1)
Quarter: 2014Q1

REPORT INFORMATION
  Report Type: Spontaneous
  Country: US (occurrence: None)
  Receive Date: 20140117
  Receipt Date: 20140117
  Transmission Date: 20141002
  Serious: Yes (Other)
  Sender: FDA-Public Use
  Company Number: None

PATIENT
  Age: 61 Year
  Sex: Female

DRUGS (1)
  1. LANTUS SOLOSTAR [Suspect]
     Indication: DIABETES MELLITUS
     Dosage: 48 UNITS  QHS/BEDTIME  SUBCUTANEOUS
     Route: 058
     Dates: start: 20140105, end: 20140106

REACTIONS (2)
  - Device breakage [None]
  - Incorrect dose administered [None]
